FAERS Safety Report 6764318-X (Version None)
Quarter: 2010Q2

REPORT INFORMATION
  Report Type: 
  Country: None (occurrence: None)
  Receive Date: 20100610
  Receipt Date: 20100609
  Transmission Date: 20101027
  Serious: Yes (Hospitalization, Other)
  Sender: FDA-Public Use
  Company Number: JP-ABBOTT-10P-087-0622822-00

PATIENT
  Sex: Female
  Weight: 8 kg

DRUGS (6)
  1. CEFZON [Suspect]
     Indication: INFECTION
     Route: 048
     Dates: start: 20080509, end: 20080512
  2. FAROM [Suspect]
     Indication: INFECTION
     Route: 048
     Dates: start: 20080501, end: 20080512
  3. ERYTHROMYCIN [Suspect]
     Indication: INFECTION
     Route: 048
     Dates: start: 20080505, end: 20080506
  4. ZITHROMAX [Suspect]
     Indication: INFECTION
     Route: 048
     Dates: start: 20080507, end: 20080509
  5. PACETCOOL [Suspect]
     Indication: INFECTION
     Route: 042
     Dates: start: 20080512, end: 20080516
  6. PACETCOOL [Suspect]
     Route: 042
     Dates: start: 20080524, end: 20080525

REACTIONS (2)
  - HISTIOCYTOSIS HAEMATOPHAGIC [None]
  - STEVENS-JOHNSON SYNDROME [None]
